FAERS Safety Report 13734880 (Version 2)
Quarter: 2017Q3

REPORT INFORMATION
  Report Type: Spontaneous
  Country: RU (occurrence: RU)
  Receive Date: 20170710
  Receipt Date: 20170717
  Transmission Date: 20171127
  Serious: No
  Sender: FDA-Public Use
  Company Number: RU-AMGEN-RUSSP2017102054

PATIENT
  Age: 67 Year
  Sex: Female
  Weight: 115 kg

DRUGS (6)
  1. MIMPARA [Suspect]
     Active Substance: CINACALCET HYDROCHLORIDE
     Indication: PARATHYROID TUMOUR MALIGNANT
     Dosage: UNK, EVERY OTHER DAY
     Route: 048
     Dates: start: 20170630, end: 20170702
  2. CARVEDIOL [Concomitant]
     Active Substance: CARVEDILOL
  3. METGLIB [Concomitant]
     Dosage: 1/2 DF, BID
  4. METFORMIN [Concomitant]
     Active Substance: METFORMIN HYDROCHLORIDE
     Dosage: 1 DF, QD
  5. ANASTROZOLE. [Concomitant]
     Active Substance: ANASTROZOLE
     Dosage: 1 DF, QD
  6. BAGOMET [Concomitant]
     Dosage: 1/2 DF, BID

REACTIONS (3)
  - Nausea [Not Recovered/Not Resolved]
  - Aphonia [Not Recovered/Not Resolved]
  - Cough [Not Recovered/Not Resolved]

NARRATIVE: CASE EVENT DATE: 20170702
